FAERS Safety Report 12041842 (Version 1)
Quarter: 2016Q1

REPORT INFORMATION
  Report Type: Spontaneous
  Country: IT (occurrence: IT)
  Receive Date: 20160208
  Receipt Date: 20160208
  Transmission Date: 20160526
  Serious: Yes (Other)
  Sender: FDA-Public Use
  Company Number: CHPA2016IT001355

PATIENT
  Age: 48 Year
  Sex: Female

DRUGS (1)
  1. LANSOPRAZOLE. [Suspect]
     Active Substance: LANSOPRAZOLE
     Indication: GASTROOESOPHAGEAL REFLUX DISEASE
     Dosage: 30 MG, QD
     Route: 065

REACTIONS (4)
  - Product use issue [Unknown]
  - Incorrect drug administration duration [Unknown]
  - Subacute cutaneous lupus erythematosus [Recovered/Resolved]
  - Incorrect dose administered [Unknown]
